FAERS Safety Report 14530908 (Version 1)
Quarter: 2018Q1

REPORT INFORMATION
  Report Type: Spontaneous
  Country: US (occurrence: US)
  Receive Date: 20180213
  Receipt Date: 20180213
  Transmission Date: 20180509
  Serious: Yes (Other)
  Sender: FDA-Public Use
  Company Number: None

PATIENT
  Age: 70 Year
  Sex: Female

DRUGS (9)
  1. MORINGA ROOT [Concomitant]
  2. IMIQUIMOD. [Suspect]
     Active Substance: IMIQUIMOD
     Indication: SKIN CANCER
     Dosage: ?          QUANTITY:0.5 TUBE;?
     Route: 061
  3. COLITIN [Concomitant]
  4. DIAMOX SEQUELS [Concomitant]
     Active Substance: ACETAZOLAMIDE
  5. VITAMIN E [Concomitant]
     Active Substance: .ALPHA.-TOCOPHEROL
  6. LAMICTAL [Concomitant]
     Active Substance: LAMOTRIGINE
  7. BIOTIN [Concomitant]
     Active Substance: BIOTIN
  8. HYDROCODONE BITARTRATE AND ACETAMINOPHEN [Concomitant]
     Active Substance: ACETAMINOPHEN\HYDROCODONE BITARTRATE
  9. VITAMIN D [Concomitant]
     Active Substance: CHOLECALCIFEROL

REACTIONS (2)
  - Application site ulcer [None]
  - Rash [None]

NARRATIVE: CASE EVENT DATE: 20180203
